FAERS Safety Report 15103728 (Version 1)
Quarter: 2018Q3

REPORT INFORMATION
  Report Type: Spontaneous
  Country: US (occurrence: US)
  Receive Date: 20180703
  Receipt Date: 20180703
  Transmission Date: 20181010
  Serious: Yes (Hospitalization)
  Sender: FDA-Public Use
  Company Number: US-VYERA PHARMACEUTICALS, LLC-2018VYE00028

PATIENT
  Age: 66 Year
  Sex: Male
  Weight: 81.63 kg

DRUGS (6)
  1. LEUCOVORIN. [Concomitant]
     Active Substance: LEUCOVORIN
     Dosage: 10 MG, 1X/DAY IN THE MORNING
  2. COSOPT [Concomitant]
     Active Substance: DORZOLAMIDE HYDROCHLORIDE\TIMOLOL MALEATE
  3. SULFASALAZINE. [Concomitant]
     Active Substance: SULFASALAZINE
     Dosage: 3 TABLETS, EVERY 6 HOURS
  4. METFORMIN [Concomitant]
     Active Substance: METFORMIN HYDROCHLORIDE
     Dosage: 500 MG, 2X/DAY
  5. DARAPRIM [Suspect]
     Active Substance: PYRIMETHAMINE
     Indication: TOXOPLASMOSIS
     Dosage: 3 TABLETS, 1X/DAY WITH OTHER MEDICATIONS
     Route: 048
     Dates: start: 20180610, end: 20180615
  6. DARAPRIM [Suspect]
     Active Substance: PYRIMETHAMINE
     Dosage: 8 TABLETS, 1X/DAY IN THE MORNING
     Route: 048
     Dates: start: 20180609, end: 20180609

REACTIONS (14)
  - Blood pressure diastolic decreased [Not Recovered/Not Resolved]
  - Lethargy [Recovered/Resolved]
  - Nausea [Recovered/Resolved]
  - Abdominal pain [Recovered/Resolved]
  - Blood potassium abnormal [Not Recovered/Not Resolved]
  - Vomiting [Recovered/Resolved]
  - Dehydration [Recovering/Resolving]
  - Haemoglobin decreased [Not Recovered/Not Resolved]
  - Headache [Recovered/Resolved]
  - Disorientation [Recovered/Resolved]
  - Blood magnesium abnormal [Not Recovered/Not Resolved]
  - Renal failure [Recovering/Resolving]
  - Gastric ulcer haemorrhage [Not Recovered/Not Resolved]
  - Blood glucose abnormal [Not Recovered/Not Resolved]

NARRATIVE: CASE EVENT DATE: 201806
